FAERS Safety Report 4318898-4 (Version None)
Quarter: 2004Q1

REPORT INFORMATION
  Report Type: 
  Country: None (occurrence: None)
  Receive Date: 20040315
  Receipt Date: 20040301
  Transmission Date: 20041129
  Serious: No
  Sender: FDA-Public Use
  Company Number: 04P-167-0252170-00

PATIENT
  Age: 25 Year
  Sex: Female
  Weight: 75 kg

DRUGS (1)
  1. MERIDIA [Suspect]
     Indication: WEIGHT CONTROL
     Dosage: 10 MG, 1 IN 1 D; PER ORAL
     Route: 048
     Dates: start: 20030616, end: 20040117

REACTIONS (1)
  - AXILLARY VEIN THROMBOSIS [None]
